FAERS Safety Report 5021092-5 (Version None)
Quarter: 2006Q2

REPORT INFORMATION
  Report Type: 
  Country: None (occurrence: None)
  Receive Date: 20060607
  Receipt Date: 20060607
  Transmission Date: 20061013
  Serious: Yes (Hospitalization, Other)
  Sender: FDA-Public Use
  Company Number: None

PATIENT
  Sex: Male
  Weight: 99 kg

DRUGS (1)
  1. CYTARABINE [Suspect]
     Indication: ACUTE MYELOID LEUKAEMIA
     Dosage: 10000 MG
     Dates: start: 20060414

REACTIONS (18)
  - ABDOMINAL PAIN [None]
  - AGITATION [None]
  - ANXIETY [None]
  - CONFUSIONAL STATE [None]
  - COORDINATION ABNORMAL [None]
  - DECREASED APPETITE [None]
  - DYSPNOEA [None]
  - ELECTROENCEPHALOGRAM ABNORMAL [None]
  - EXCORIATION [None]
  - FALL [None]
  - GAIT DISTURBANCE [None]
  - LUNG NEOPLASM [None]
  - NAUSEA [None]
  - OESOPHAGITIS [None]
  - RESPIRATORY DISORDER [None]
  - RESTLESSNESS [None]
  - VOMITING [None]
  - WALKING AID USER [None]
